FAERS Safety Report 6779899-X (Version None)
Quarter: 2010Q2

REPORT INFORMATION
  Report Type: 
  Country: None (occurrence: None)
  Receive Date: 20100618
  Receipt Date: 20100615
  Transmission Date: 20101027
  Serious: Yes (Hospitalization, Other)
  Sender: FDA-Public Use
  Company Number: CA-MERCK-1006USA02393

PATIENT
  Age: 54 Year
  Sex: Female
  Weight: 93 kg

DRUGS (8)
  1. JANUVIA [Suspect]
     Route: 048
  2. ASPIRIN [Concomitant]
     Route: 065
  3. LEVEMIR [Concomitant]
     Route: 058
  4. METFORMIN [Concomitant]
     Route: 065
  5. METOPROLOL [Concomitant]
     Route: 065
  6. NOVORAPID [Concomitant]
     Route: 065
  7. ZESTORETIC [Concomitant]
     Route: 065
  8. ZOCOR [Concomitant]
     Route: 048

REACTIONS (4)
  - BLOOD PARATHYROID HORMONE DECREASED [None]
  - DEHYDRATION [None]
  - HYPERCALCAEMIA [None]
  - RENAL FAILURE [None]
